FAERS Safety Report 12876573 (Version 1)
Quarter: 2016Q4

REPORT INFORMATION
  Report Type: Spontaneous
  Country: CH (occurrence: CH)
  Receive Date: 20161024
  Receipt Date: 20161024
  Transmission Date: 20170207
  Serious: Yes (Hospitalization)
  Sender: FDA-Public Use
  Company Number: CH-ABBVIE-16P-151-1760307-00

PATIENT
  Age: 85 Year
  Sex: Female

DRUGS (18)
  1. PREDNISON (PREDNISONE) [Suspect]
     Active Substance: PREDNISONE
     Indication: POLYARTHRITIS
     Route: 048
     Dates: start: 20160723, end: 20160730
  2. PREDNISON (PREDNISONE) [Suspect]
     Active Substance: PREDNISONE
     Route: 048
     Dates: start: 2016, end: 20160810
  3. REMERON [Suspect]
     Active Substance: MIRTAZAPINE
     Indication: MENTAL DISORDER
     Route: 048
     Dates: start: 2016, end: 20160722
  4. DUPHALAC (LACTULOSE) [Concomitant]
     Indication: PRODUCT USED FOR UNKNOWN INDICATION
     Route: 065
     Dates: end: 20160804
  5. SEROQUEL [Suspect]
     Active Substance: QUETIAPINE FUMARATE
     Route: 048
     Dates: start: 20160725, end: 20160804
  6. DISTRANEURIN (CLOMETHIAZOLE EDISILATE) [Concomitant]
     Indication: PRODUCT USED FOR UNKNOWN INDICATION
     Route: 065
  7. MOVICOL [Concomitant]
     Active Substance: POLYETHYLENE GLYCOL 3350\POTASSIUM CHLORIDE\SODIUM BICARBONATE\SODIUM CHLORIDE
     Indication: PRODUCT USED FOR UNKNOWN INDICATION
     Route: 065
     Dates: end: 20160804
  8. DEPAKINE CHRONO [Suspect]
     Active Substance: VALPROATE SODIUM
     Route: 048
     Dates: start: 20160726, end: 20160730
  9. IMPORTAL (LACTITOL) [Concomitant]
     Indication: PRODUCT USED FOR UNKNOWN INDICATION
     Route: 065
     Dates: end: 20160806
  10. PREDNISON (PREDNISONE) [Suspect]
     Active Substance: PREDNISONE
     Route: 048
     Dates: start: 20160730
  11. CLOPIDOGREL [Concomitant]
     Active Substance: CLOPIDOGREL BISULFATE
     Indication: PRODUCT USED FOR UNKNOWN INDICATION
     Route: 065
  12. IMOVANE [Concomitant]
     Active Substance: ZOPICLONE
     Indication: PRODUCT USED FOR UNKNOWN INDICATION
     Route: 065
     Dates: end: 20160811
  13. DEPAKINE CHRONO [Suspect]
     Active Substance: VALPROATE SODIUM
     Indication: MANIA
     Route: 048
     Dates: start: 20160719
  14. DEPAKINE CHRONO [Suspect]
     Active Substance: VALPROATE SODIUM
     Route: 048
     Dates: start: 20160730
  15. LISINOPRIL (LISINOPRIL) [Concomitant]
     Active Substance: LISINOPRIL
     Indication: PRODUCT USED FOR UNKNOWN INDICATION
     Route: 065
  16. SEROQUEL [Suspect]
     Active Substance: QUETIAPINE FUMARATE
     Indication: MENTAL DISORDER
     Route: 048
     Dates: start: 20160722, end: 20160725
  17. SEROQUEL [Suspect]
     Active Substance: QUETIAPINE FUMARATE
     Indication: MANIA
     Route: 048
     Dates: start: 2016, end: 20160722
  18. HALDOL DECANOATE [Concomitant]
     Active Substance: HALOPERIDOL DECANOATE
     Indication: PRODUCT USED FOR UNKNOWN INDICATION
     Route: 065
     Dates: start: 20160809

REACTIONS (7)
  - Inappropriate antidiuretic hormone secretion [Recovering/Resolving]
  - Hyponatraemia [Recovering/Resolving]
  - Confusional state [Recovered/Resolved]
  - Mania [Recovered/Resolved]
  - Vomiting [Recovered/Resolved]
  - Renal failure [None]
  - Dehydration [None]

NARRATIVE: CASE EVENT DATE: 201607
